FAERS Safety Report 10590630 (Version 1)
Quarter: 2014Q4

REPORT INFORMATION
  Report Type: Spontaneous
  Country: FR (occurrence: FR)
  Receive Date: 20141118
  Receipt Date: 20141118
  Transmission Date: 20150529
  Serious: Yes (Hospitalization, Other)
  Sender: FDA-Public Use
  Company Number: FR-PFIZER INC-2014313508

PATIENT
  Age: 82 Year
  Sex: Female

DRUGS (11)
  1. CLARADOL CAFFEINE [Concomitant]
  2. UVEDOSE [Concomitant]
     Active Substance: CHOLECALCIFEROL
  3. EUPRESSYL [Concomitant]
     Active Substance: URAPIDIL
  4. ALDACTONE [Suspect]
     Active Substance: SPIRONOLACTONE
     Indication: HYPERTENSION
     Dosage: 25 MG, 1X/DAY
     Route: 048
     Dates: start: 20140923, end: 20141001
  5. PIROXICAM. [Suspect]
     Active Substance: PIROXICAM
     Indication: BACK PAIN
     Dosage: 20 MG, 1X/DAY
     Route: 030
     Dates: start: 20140926, end: 20140930
  6. ACUPAN [Suspect]
     Active Substance: NEFOPAM HYDROCHLORIDE
     Indication: BACK PAIN
     Dosage: 20 MG, 2X/DAY
     Route: 030
     Dates: start: 20140926, end: 20140930
  7. ACTICARBINE [Concomitant]
  8. DOLIPRANE [Concomitant]
     Active Substance: ACETAMINOPHEN
     Indication: BACK PAIN
     Dosage: UNK
     Dates: start: 20140926
  9. MOPRAL [Concomitant]
     Active Substance: OMEPRAZOLE SODIUM
     Indication: BACK PAIN
     Dosage: UNK
     Dates: start: 20140926
  10. ZANIDIP [Concomitant]
     Active Substance: LERCANIDIPINE HYDROCHLORIDE
     Dosage: UNK
     Dates: end: 20140923
  11. DETENSIEL [Concomitant]
     Active Substance: BISOPROLOL FUMARATE

REACTIONS (4)
  - Confusional state [Recovered/Resolved]
  - Hypotension [Unknown]
  - Diarrhoea [Unknown]
  - Hyponatraemia [Unknown]

NARRATIVE: CASE EVENT DATE: 20140930
